FAERS Safety Report 25355468 (Version 1)
Quarter: 2025Q2

REPORT INFORMATION
  Report Type: Spontaneous
  Country: US (occurrence: US)
  Receive Date: 20250525
  Receipt Date: 20250525
  Transmission Date: 20250717
  Serious: No
  Sender: GLAXOSMITHKLINE
  Company Number: US-GSK-US2025062202

PATIENT
  Age: 85 Year
  Sex: Female
  Weight: 87.54 kg

DRUGS (2)
  1. TRELEGY ELLIPTA [Suspect]
     Active Substance: FLUTICASONE FUROATE\UMECLIDINIUM BROMIDE\VILANTEROL TRIFENATATE
     Indication: Chronic obstructive pulmonary disease
     Dosage: 1 PUFF(S), QD
     Route: 055
     Dates: start: 2019
  2. FORMOTEROL [Suspect]
     Active Substance: FORMOTEROL
     Indication: Chronic obstructive pulmonary disease
     Dosage: 20MCG-2ML VIAL NEBULIZING SOLUTION, QD
     Route: 055
     Dates: start: 20250416, end: 20250430

REACTIONS (2)
  - Lip blister [Unknown]
  - Lip swelling [Unknown]

NARRATIVE: CASE EVENT DATE: 20250423
